FAERS Safety Report 11745019 (Version 2)
Quarter: 2015Q4

REPORT INFORMATION
  Report Type: Spontaneous
  Country: DE (occurrence: DE)
  Receive Date: 20151117
  Receipt Date: 20151127
  Transmission Date: 20160304
  Serious: Yes (Life-Threatening, Hospitalization)
  Sender: FDA-Public Use
  Company Number: DE-AMGEN-DEUSP2015120487

PATIENT
  Age: 55 Year
  Sex: Female
  Weight: 62 kg

DRUGS (4)
  1. NEULASTA [Suspect]
     Active Substance: PEGFILGRASTIM
     Indication: NEUTROPENIA
     Dosage: 6 MG, 1 IN 1 D
     Route: 065
     Dates: start: 20151029, end: 20151101
  2. DOXORUBICIN [Suspect]
     Active Substance: DOXORUBICIN
     Indication: BREAST CANCER
     Dosage: 25 MG, 1 IN 1 WK LAST DOSE PRIOR TO SAE: 28/SEP/2015
     Route: 042
     Dates: start: 20150722
  3. PACLITAXEL. [Suspect]
     Active Substance: PACLITAXEL
     Indication: BREAST CANCER
     Dosage: 101 MG, 1 IN 1 WK LAST DOSE PRIOR TO SAE: 28/SEP/2015
     Route: 042
     Dates: start: 20150722
  4. CARBOPLATIN. [Suspect]
     Active Substance: CARBOPLATIN
     Indication: BREAST CANCER
     Dosage: 101 MG, 1 IN 1 WK LAST DOSE PRIOR TO SAE: 28/SEP/2015
     Route: 042
     Dates: start: 20150722

REACTIONS (1)
  - Dyspnoea [Not Recovered/Not Resolved]

NARRATIVE: CASE EVENT DATE: 20151105
